FAERS Safety Report 4563570-9 (Version None)
Quarter: 2005Q1

REPORT INFORMATION
  Report Type: 
  Country: None (occurrence: None)
  Receive Date: 20050128
  Receipt Date: 20041008
  Transmission Date: 20050727
  Serious: Yes (Other)
  Sender: FDA-Public Use
  Company Number: US-GLAXOSMITHKLINE-A0529112A

PATIENT
  Sex: Female

DRUGS (3)
  1. WELLBUTRIN [Suspect]
     Indication: ILL-DEFINED DISORDER
     Route: 048
     Dates: start: 20040801
  2. NEURONTIN [Concomitant]
  3. OXYCONTIN [Concomitant]

REACTIONS (1)
  - HAEMOLYTIC ANAEMIA [None]
